FAERS Safety Report 9445803 (Version 1)
Quarter: 2013Q3

REPORT INFORMATION
  Report Type: Spontaneous
  Country: CA (occurrence: CA)
  Receive Date: 20130807
  Receipt Date: 20130807
  Transmission Date: 20140515
  Serious: Yes (Other)
  Sender: FDA-Public Use
  Company Number: CHPA2013CA012274

PATIENT
  Age: 66 Year
  Sex: Female

DRUGS (3)
  1. EX-LAX EXTRA STRENGTH [Suspect]
     Indication: CONSTIPATION
     Dosage: 4 DF, QD
     Route: 048
  2. EX-LAX CHOCOLATE PIECES [Suspect]
     Indication: CONSTIPATION
     Dosage: 4 DF, ONCE A WEEK
     Route: 048
  3. EX-LAX CHOCOLATE PIECES [Suspect]
     Dosage: 1 DF, QD
     Route: 048

REACTIONS (14)
  - Arterial occlusive disease [Recovered/Resolved]
  - Diabetes mellitus [Not Recovered/Not Resolved]
  - Deafness unilateral [Not Recovered/Not Resolved]
  - Skin ulcer [Not Recovered/Not Resolved]
  - Cataract [Recovered/Resolved]
  - Gastrointestinal motility disorder [Not Recovered/Not Resolved]
  - Foot fracture [Not Recovered/Not Resolved]
  - Dizziness [Not Recovered/Not Resolved]
  - Arthritis [Not Recovered/Not Resolved]
  - Constipation [Not Recovered/Not Resolved]
  - Disease recurrence [Not Recovered/Not Resolved]
  - Incorrect dose administered [Unknown]
  - Incorrect drug administration duration [Unknown]
  - Off label use [Unknown]
